FAERS Safety Report 15787380 (Version 2)
Quarter: 2019Q1

REPORT INFORMATION
  Report Type: Spontaneous
  Country: GR (occurrence: GR)
  Receive Date: 20190103
  Receipt Date: 20190116
  Transmission Date: 20190417
  Serious: Yes (Other)
  Sender: FDA-Public Use
  Company Number: GR-ALLERGAN-1900024US

PATIENT
  Age: 56 Year
  Sex: Female

DRUGS (3)
  1. CITALOPRAM HYDROBROMIDE - BP [Suspect]
     Active Substance: CITALOPRAM HYDROBROMIDE
     Indication: PERINATAL DEPRESSION
     Dosage: 1 DF, QD
     Route: 048
  2. CITALOPRAM HYDROBROMIDE - BP [Suspect]
     Active Substance: CITALOPRAM HYDROBROMIDE
     Dosage: 1 DF, QD
     Route: 048
  3. CITALOPRAM HYDROBROMIDE - BP [Suspect]
     Active Substance: CITALOPRAM HYDROBROMIDE
     Dosage: 2 DF, QD
     Route: 048
     Dates: start: 201809

REACTIONS (2)
  - Increased tendency to bruise [Recovered/Resolved]
  - Haemorrhage [Recovered/Resolved]

NARRATIVE: CASE EVENT DATE: 20181223
